FAERS Safety Report 5403733-3 (Version None)
Quarter: 2007Q3

REPORT INFORMATION
  Report Type: 
  Country: None (occurrence: None)
  Receive Date: 20070802
  Receipt Date: 20070723
  Transmission Date: 20080115
  Serious: Yes (Life-Threatening, Hospitalization, Other)
  Sender: FDA-Public Use
  Company Number: US-JNJFOC-20060504632

PATIENT
  Sex: Female
  Weight: 84.82 kg

DRUGS (18)
  1. DURAGESIC-100 [Suspect]
     Route: 062
  2. DURAGESIC-100 [Suspect]
     Route: 062
  3. DURAGESIC-100 [Suspect]
     Indication: PROCEDURAL PAIN
     Route: 062
  4. LOVENOX [Concomitant]
     Route: 058
  5. LEVAQUIN [Concomitant]
  6. GABAPENTIN [Concomitant]
  7. LANSOPRAZOLE [Concomitant]
  8. LANSOPRAZOLE [Concomitant]
  9. LEVOTHYROXINE SODIUM [Concomitant]
  10. DILTIAZEM [Concomitant]
  11. DILTIAZEM [Concomitant]
     Indication: ATRIAL FIBRILLATION
  12. MAGNESIUM SULFATE [Concomitant]
  13. METOPROLOL SUCCINATE [Concomitant]
     Indication: HEART RATE
  14. ZOCOR [Concomitant]
  15. M.V.I. [Concomitant]
  16. CHONDROITIN [Concomitant]
  17. ASCORBIC ACID [Concomitant]
  18. VITAMIN E [Concomitant]

REACTIONS (8)
  - ANXIETY [None]
  - COMA [None]
  - PNEUMONIA ASPIRATION [None]
  - RENAL FAILURE ACUTE [None]
  - RESPIRATORY FAILURE [None]
  - RHABDOMYOLYSIS [None]
  - SEPTIC SHOCK [None]
  - STRESS [None]
